FAERS Safety Report 21712199 (Version 1)
Quarter: 2022Q4

REPORT INFORMATION
  Report Type: Spontaneous
  Country: US (occurrence: US)
  Receive Date: 20221212
  Receipt Date: 20221212
  Transmission Date: 20230112
  Serious: No
  Sender: FDA-Public Use
  Company Number: US-ORG100016242-2022002030

PATIENT
  Sex: Female

DRUGS (1)
  1. EXPAREL [Suspect]
     Active Substance: BUPIVACAINE
     Indication: Umbilical hernia repair
     Dosage: DOSE NOT PROVIDED
     Route: 050
     Dates: start: 20220816, end: 20220816

REACTIONS (3)
  - Administration site irritation [Not Recovered/Not Resolved]
  - Injection site erythema [Not Recovered/Not Resolved]
  - Administration site swelling [Not Recovered/Not Resolved]

NARRATIVE: CASE EVENT DATE: 20220816
